FAERS Safety Report 8811400 (Version 1)
Quarter: 2012Q4

REPORT INFORMATION
  Report Type: 
  Country: AT (occurrence: AT)
  Receive Date: 20120927
  Receipt Date: 20120927
  Transmission Date: 20130627
  Serious: Yes (Death)
  Sender: FDA-Public Use
  Company Number: AT-BAYER-2012-096806

PATIENT
  Sex: Male
  Weight: 69.84 kg

DRUGS (1)
  1. NEXAVAR [Suspect]
     Indication: ACUTE MYELOID LEUKAEMIA
     Dosage: 200 mg, BID
     Route: 048
     Dates: start: 20120615, end: 20120821

REACTIONS (1)
  - Acute myeloid leukaemia [Fatal]
